FAERS Safety Report 7591559-4 (Version None)
Quarter: 2011Q2

REPORT INFORMATION
  Report Type: 
  Country: None (occurrence: None)
  Receive Date: 20110627
  Receipt Date: 20110614
  Transmission Date: 20111010
  Serious: Yes (Other)
  Sender: FDA-Public Use
  Company Number: 2011MA007760

PATIENT
  Age: 69 Year

DRUGS (5)
  1. METFORMIN HYDROCHLORIDE [Suspect]
     Indication: DIABETES MELLITUS
     Dosage: 1 G; PO
     Route: 048
  2. SILDENAFIL CITRATE [Concomitant]
  3. BYETTA [Suspect]
     Dosage: 10 MCG;BID
  4. ATORVASTATIN [Suspect]
     Indication: BLOOD CHOLESTEROL INCREASED
     Dosage: 20 MG; PO
     Route: 048
  5. GLICAZIDE (GLICALZIDE) [Suspect]
     Indication: DIABETES MELLITUS
     Dosage: 80 MG

REACTIONS (2)
  - ERYTHEMA [None]
  - SKIN REACTION [None]
